FAERS Safety Report 7064314-1 (Version None)
Quarter: 2010Q4

REPORT INFORMATION
  Report Type: 
  Country: None (occurrence: None)
  Receive Date: 20101027
  Receipt Date: 20101018
  Transmission Date: 20110411
  Serious: Yes (Other)
  Sender: FDA-Public Use
  Company Number: US-JNJFOC-20100904880

PATIENT
  Sex: Female
  Weight: 79.38 kg

DRUGS (7)
  1. REMICADE [Suspect]
     Indication: CROHN'S DISEASE
     Dosage: 6-7 INFUSIONS
     Route: 042
  2. REMICADE [Suspect]
     Route: 042
  3. PRISTIQ [Concomitant]
     Indication: DEPRESSION
  4. ACIPHEX [Concomitant]
     Indication: GASTRIC DISORDER
  5. IMURAN [Concomitant]
     Indication: CROHN'S DISEASE
  6. IMURAN [Concomitant]
  7. STEROIDS NOS [Concomitant]
     Indication: PREMEDICATION

REACTIONS (4)
  - JOINT SWELLING [None]
  - MUSCULOSKELETAL PAIN [None]
  - PAIN IN JAW [None]
  - RASH GENERALISED [None]
